FAERS Safety Report 5825209-1 (Version None)
Quarter: 2008Q3

REPORT INFORMATION
  Report Type: 
  Country: None (occurrence: None)
  Receive Date: 20080729
  Receipt Date: 20080721
  Transmission Date: 20090109
  Serious: Yes (Other)
  Sender: FDA-Public Use
  Company Number: PHHY2008BR14695

PATIENT
  Age: 80 Year
  Sex: Male
  Weight: 74 kg

DRUGS (13)
  1. TEGRETOL [Suspect]
     Indication: PAIN
     Dosage: 1 TABLET DAILY
     Route: 048
  2. PREXIGE [Suspect]
     Route: 048
  3. ADALAT [Concomitant]
     Dosage: 1 TABLET DAILY
     Route: 048
  4. DOXAZOSIN MESYLATE [Concomitant]
     Dosage: 1 TABLET DAILY
     Route: 048
  5. SOMALGIN [Concomitant]
     Dosage: UNK
     Route: 048
  6. ALPRAZOLAM [Concomitant]
     Indication: ANXIETY
     Dosage: 2 TABLETS DAILY
     Route: 048
  7. SUSTRATE [Concomitant]
     Dosage: UNK
     Route: 048
  8. DALMADORM [Concomitant]
     Indication: ANXIETY
     Dosage: 1 TABLET AT NIGHT
     Route: 048
  9. LIPITOR [Concomitant]
     Indication: BLOOD CHOLESTEROL
     Dosage: 1 TABLET DAILY
     Route: 048
  10. LIPITOR [Concomitant]
     Dosage: 1 TABLET DAILY
     Route: 048
  11. SIMVASTATIN [Concomitant]
     Indication: BLOOD CHOLESTEROL
     Dosage: 1 TABLET DAILY
     Route: 048
  12. INDAPEN [Concomitant]
     Dosage: 1 TABLET DAILY
     Route: 048
  13. CITALOPRAM HYDROBROMIDE [Concomitant]
     Indication: DEPRESSION
     Dosage: 1 TABLET DAILY
     Route: 048

REACTIONS (4)
  - ANXIETY [None]
  - GLAUCOMA SURGERY [None]
  - PAIN [None]
  - VISUAL ACUITY REDUCED [None]
